FAERS Safety Report 6805614-7 (Version None)
Quarter: 2010Q2

REPORT INFORMATION
  Report Type: 
  Country: None (occurrence: None)
  Receive Date: 20100628
  Receipt Date: 20080205
  Transmission Date: 20101027
  Serious: Yes (Other)
  Sender: FDA-Public Use
  Company Number: US-PFIZER INC-2008011325

PATIENT
  Sex: Female

DRUGS (1)
  1. GEODON [Suspect]
     Dates: start: 20080101, end: 20080203

REACTIONS (3)
  - INFLUENZA LIKE ILLNESS [None]
  - LOWER RESPIRATORY TRACT INFECTION [None]
  - PYREXIA [None]
